FAERS Safety Report 16425160 (Version 3)
Quarter: 2019Q2

REPORT INFORMATION
  Report Type: Spontaneous
  Country: LT (occurrence: LT)
  Receive Date: 20190613
  Receipt Date: 20190624
  Transmission Date: 20190711
  Serious: Yes (Hospitalization, Other)
  Sender: FDA-Public Use
  Company Number: LT-ASTRAZENECA-2019SE84178

PATIENT
  Age: 58 Year
  Sex: Male
  Weight: 88 kg

DRUGS (7)
  1. HYDROCHLOROTHIAZIDE. [Concomitant]
     Active Substance: HYDROCHLOROTHIAZIDE
  2. BRILIQUE [Suspect]
     Active Substance: TICAGRELOR
     Indication: MYOCARDIAL INFARCTION
     Route: 048
     Dates: start: 201905
  3. CARVEDILOL. [Concomitant]
     Active Substance: CARVEDILOL
  4. METOPROLOL. [Concomitant]
     Active Substance: METOPROLOL
  5. ASPIRIN. [Concomitant]
     Active Substance: ASPIRIN
  6. TAMSULOSIN [Concomitant]
     Active Substance: TAMSULOSIN
  7. CEFUROXIMUM [Concomitant]

REACTIONS (7)
  - Pyelonephritis acute [Unknown]
  - Haematuria [Unknown]
  - Urinary retention [Recovered/Resolved]
  - Urosepsis [Unknown]
  - Urostomy complication [Unknown]
  - Stoma site infection [Unknown]
  - Loss of consciousness [Unknown]

NARRATIVE: CASE EVENT DATE: 20190525
